APPROVED DRUG PRODUCT: MONISTAT 3 COMBINATION PACK
Active Ingredient: MICONAZOLE NITRATE
Strength: 2%,200MG
Dosage Form/Route: CREAM, SUPPOSITORY;TOPICAL, VAGINAL
Application: N020670 | Product #002
Applicant: MEDTECH PRODUCTS INC
Approved: Apr 16, 1996 | RLD: Yes | RS: Yes | Type: OTC